FAERS Safety Report 8262095-7 (Version None)
Quarter: 2012Q2

REPORT INFORMATION
  Report Type: 
  Country: None (occurrence: None)
  Receive Date: 20120405
  Receipt Date: 20120326
  Transmission Date: 20120825
  Serious: Yes (Other)
  Sender: FDA-Public Use
  Company Number: PHHY2012BR017708

PATIENT
  Sex: Female

DRUGS (5)
  1. DIOVAN HCT [Suspect]
     Dosage: 2 TABLETS (160/12.5 MG ), UNK
  2. CLONAZEPAM [Concomitant]
     Indication: SEDATION
     Dosage: 1 TABLET (2 MG) AT NIGHT
  3. DIOVAN HCT [Suspect]
     Indication: BLOOD PRESSURE
     Dosage: 1 TABLET (160/12.5 MG) AT MORNING
  4. NIFEDIPINE [Concomitant]
     Indication: BLOOD PRESSURE
     Dosage: 1 TABLET (10 MG) AT NIGHT
  5. VENLAFAXINE HCL [Concomitant]
     Indication: SEDATION
     Dosage: 1 TABLET (37.5 MG) AT EVENING

REACTIONS (5)
  - BLOOD PRESSURE DECREASED [None]
  - DEMENTIA ALZHEIMER'S TYPE [None]
  - SYNCOPE [None]
  - BLOOD PRESSURE INCREASED [None]
  - MALAISE [None]
